FAERS Safety Report 16974207 (Version 1)
Quarter: 2019Q4

REPORT INFORMATION
  Report Type: Spontaneous
  Country: FR (occurrence: FR)
  Receive Date: 20191030
  Receipt Date: 20191030
  Transmission Date: 20200122
  Serious: Yes (Other)
  Sender: FDA-Public Use
  Company Number: FR-PFIZER INC-2019464276

PATIENT
  Age: 67 Year
  Sex: Female

DRUGS (4)
  1. SUFENTANIL [Suspect]
     Active Substance: SUFENTANIL
     Indication: ANALGESIC THERAPY
     Dosage: 30 UG, SINGLE
     Route: 042
     Dates: start: 20080325, end: 20080325
  2. CISATRACURIUM BESILATE [Suspect]
     Active Substance: CISATRACURIUM BESYLATE
     Indication: GENERAL ANAESTHESIA
     Dosage: 8 MG, SINGLE
     Route: 042
     Dates: start: 20080325, end: 20080325
  3. PATENT BLUE V [PATENT BLUE V CI 42051 E131] [Suspect]
     Active Substance: PATENT BLUE V
     Indication: DIAGNOSTIC PROCEDURE
     Dosage: 1 DF, SINGLE
     Route: 058
     Dates: start: 20080325, end: 20080325
  4. PROPOFOL. [Suspect]
     Active Substance: PROPOFOL
     Indication: GENERAL ANAESTHESIA
     Dosage: 20 MG, SINGLE
     Route: 042
     Dates: start: 20080325, end: 20080325

REACTIONS (2)
  - Hypovolaemic shock [Recovered/Resolved]
  - Bronchospasm [Recovered/Resolved]

NARRATIVE: CASE EVENT DATE: 20080325
